APPROVED DRUG PRODUCT: LENALIDOMIDE
Active Ingredient: LENALIDOMIDE
Strength: 5MG
Dosage Form/Route: CAPSULE;ORAL
Application: A215759 | Product #002 | TE Code: AB
Applicant: BIOCON PHARMA LTD
Approved: Mar 3, 2025 | RLD: No | RS: No | Type: RX